FAERS Safety Report 7244060-1 (Version None)
Quarter: 2011Q1

REPORT INFORMATION
  Report Type: 
  Country: None (occurrence: None)
  Receive Date: 20110119
  Receipt Date: 20110119
  Transmission Date: 20110831
  Serious: Yes (Life-Threatening, Hospitalization)
  Sender: FDA-Public Use
  Company Number: None

PATIENT
  Age: 70 Year
  Sex: Male

DRUGS (1)
  1. ALCOHOL PREPS ULTIELT 200'S BOCA [Suspect]
     Dosage: VARIOUS TOPICAL CLEANING
     Route: 061

REACTIONS (3)
  - BACTERIAL INFECTION [None]
  - PRODUCT QUALITY ISSUE [None]
  - TOE AMPUTATION [None]
